FAERS Safety Report 25334357 (Version 1)
Quarter: 2025Q2

REPORT INFORMATION
  Report Type: Spontaneous
  Country: US (occurrence: US)
  Receive Date: 20250520
  Receipt Date: 20250520
  Transmission Date: 20250717
  Serious: No
  Sender: AZURITY PHARMACEUTICALS
  Company Number: US-AZURITY PHARMACEUTICALS, INC.-AZR202503-000793

PATIENT
  Sex: Male
  Weight: 120.18 kg

DRUGS (6)
  1. TESTOSTERONE CYPIONATE [Suspect]
     Active Substance: TESTOSTERONE CYPIONATE
     Indication: Hormone replacement therapy
     Route: 065
  2. VITAMIN C [Concomitant]
     Active Substance: ASCORBIC ACID
     Indication: Product used for unknown indication
     Route: 065
  3. VITAMIN B12 [Concomitant]
     Active Substance: CYANOCOBALAMIN
     Indication: Product used for unknown indication
     Route: 065
  4. Vitamin A and K combination [Concomitant]
     Indication: Product used for unknown indication
     Route: 065
  5. FISH OIL [Concomitant]
     Active Substance: FISH OIL
     Indication: Product used for unknown indication
     Route: 065
  6. ASPIRIN [Concomitant]
     Active Substance: ASPIRIN
     Indication: Product used for unknown indication
     Route: 065

REACTIONS (7)
  - Diarrhoea [Unknown]
  - Abdominal pain upper [Unknown]
  - Decreased appetite [Unknown]
  - Illness [Unknown]
  - Product with quality issue administered [Unknown]
  - Product gel formation [Unknown]
  - Product deposit [Unknown]
